FAERS Safety Report 12963747 (Version 1)
Quarter: 2016Q4

REPORT INFORMATION
  Report Type: Spontaneous
  Country: US (occurrence: US)
  Receive Date: 20161122
  Receipt Date: 20161122
  Transmission Date: 20170207
  Serious: Yes (Other)
  Sender: FDA-Public Use
  Company Number: US-LUPIN PHARMACEUTICALS INC.-2016-05124

PATIENT
  Age: 52 Year
  Sex: Male
  Weight: 87.09 kg

DRUGS (6)
  1. QNASL [Concomitant]
     Active Substance: BECLOMETHASONE DIPROPIONATE
     Indication: HYPERSENSITIVITY
     Dosage: 80 MCG PER SPRAY TAKING IT FROM 5 YEARS AGO
  2. DULOXETINE DELAYED-RELEASE 60 MG CAPSULES USP [Suspect]
     Active Substance: DULOXETINE
     Indication: DEPRESSION
     Route: 048
     Dates: start: 201608
  3. LYRICA [Suspect]
     Active Substance: PREGABALIN
     Indication: BACK PAIN
     Route: 048
     Dates: start: 201607
  4. DULOXETINE DELAYED-RELEASE 60 MG CAPSULES USP [Suspect]
     Active Substance: DULOXETINE
     Indication: SUICIDAL IDEATION
  5. LEVOCETIRIZINE [Concomitant]
     Active Substance: LEVOCETIRIZINE
     Indication: HYPERSENSITIVITY
     Dosage: TAKING IT FOR PROBABLY 10 YEARS
     Route: 048
  6. LORAZEPAM. [Concomitant]
     Active Substance: LORAZEPAM
     Indication: ANXIETY
     Route: 048
     Dates: start: 201608

REACTIONS (6)
  - Drug ineffective [Unknown]
  - Aggression [Unknown]
  - Anger [Not Recovered/Not Resolved]
  - Suicidal ideation [Unknown]
  - Diverticulitis [Recovering/Resolving]
  - Hand fracture [Unknown]

NARRATIVE: CASE EVENT DATE: 20161017
